FAERS Safety Report 8426016-6 (Version None)
Quarter: 2012Q2

REPORT INFORMATION
  Report Type: 
  Country: None (occurrence: None)
  Receive Date: 20120604
  Receipt Date: 20120521
  Transmission Date: 20120825
  Serious: Yes (Hospitalization, Other)
  Sender: FDA-Public Use
  Company Number: DSA_57475_2012

PATIENT
  Age: 83 Year
  Sex: Female

DRUGS (8)
  1. DICLOFENAC SODIUM [Suspect]
     Indication: BACK PAIN
     Dosage: (50 MG TID), 1 WEEK
  2. AMLODIPINE [Concomitant]
  3. GLIMPIRIDE [Concomitant]
  4. HYDROCHLOROTHIAZIDE W/IRBESARTAN (IRBESARTAN / HYDROCHLOROTHIAZIDE) [Suspect]
     Indication: PRODUCT USED FOR UNKNOWN INDICATION
     Dosage: (300/12.5 MG/DAY)
     Dates: start: 20020101
  5. PANTOPRAZOLE [Concomitant]
  6. ASPIRIN [Concomitant]
  7. METOPROLOL SUCCINATE [Concomitant]
  8. PIOGLITAZONE [Concomitant]

REACTIONS (17)
  - YELLOW SKIN [None]
  - ALANINE AMINOTRANSFERASE INCREASED [None]
  - SPINAL OSTEOARTHRITIS [None]
  - ASPARTATE AMINOTRANSFERASE INCREASED [None]
  - GAMMA-GLUTAMYLTRANSFERASE INCREASED [None]
  - BLOOD LACTATE DEHYDROGENASE INCREASED [None]
  - INTERVERTEBRAL DISC PROTRUSION [None]
  - DRUG-INDUCED LIVER INJURY [None]
  - ESCHERICHIA URINARY TRACT INFECTION [None]
  - BLOOD ALKALINE PHOSPHATASE INCREASED [None]
  - OCULAR ICTERUS [None]
  - BLOOD PRESSURE INCREASED [None]
  - BLOOD BILIRUBIN INCREASED [None]
  - HEPATOCELLULAR INJURY [None]
  - SUPERFICIAL SPREADING MELANOMA STAGE UNSPECIFIED [None]
  - AREFLEXIA [None]
  - HEPATOTOXICITY [None]
